FAERS Safety Report 7410881-5 (Version None)
Quarter: 2011Q2

REPORT INFORMATION
  Report Type: 
  Country: None (occurrence: None)
  Receive Date: 20110413
  Receipt Date: 20110406
  Transmission Date: 20111010
  Serious: No
  Sender: FDA-Public Use
  Company Number: US-PFIZER INC-2011076877

PATIENT
  Sex: Male
  Weight: 86.168 kg

DRUGS (2)
  1. ALPRAZOLAM [Concomitant]
     Dosage: 0.25 MG, UNK
  2. LYRICA [Suspect]
     Indication: NEUROPATHY PERIPHERAL
     Dosage: 50 MG, 2X/DAY
     Route: 048
     Dates: start: 20110324

REACTIONS (3)
  - ERYTHEMA [None]
  - SWELLING [None]
  - PRURITUS GENERALISED [None]
